FAERS Safety Report 24645916 (Version 2)
Quarter: 2025Q3

REPORT INFORMATION
  Report Type: Report from Study
  Country: US (occurrence: US)
  Receive Date: 20241121
  Receipt Date: 20250810
  Transmission Date: 20251020
  Serious: Yes (Other)
  Sender: ALEXION PHARMACEUTICALS
  Company Number: US-AstraZeneca-CH-00747327A

PATIENT
  Sex: Male

DRUGS (1)
  1. EXENATIDE [Suspect]
     Active Substance: EXENATIDE
     Route: 065

REACTIONS (1)
  - Blindness [Unknown]
